FAERS Safety Report 5383753-8 (Version None)
Quarter: 2007Q3

REPORT INFORMATION
  Report Type: 
  Country: None (occurrence: None)
  Receive Date: 20070706
  Receipt Date: 20070625
  Transmission Date: 20080115
  Serious: Yes (Hospitalization, Other)
  Sender: FDA-Public Use
  Company Number: 234253K07USA

PATIENT
  Age: 30 Year
  Sex: Female

DRUGS (3)
  1. REBIF [Suspect]
     Indication: MULTIPLE SCLEROSIS
     Dosage: 44 MCG, 3 IN 1 WEEKS, SUBCUTANEOUS
     Route: 058
     Dates: start: 20040830, end: 20070601
  2. PROZAC [Concomitant]
  3. STEROIDS (CORTICOSTEROIDS) [Concomitant]

REACTIONS (6)
  - BALANCE DISORDER [None]
  - CATHETER THROMBOSIS [None]
  - DEPRESSION [None]
  - ECONOMIC PROBLEM [None]
  - LOCALISED INFECTION [None]
  - THROMBOSIS [None]
